FAERS Safety Report 8007153-7 (Version None)
Quarter: 2011Q4

REPORT INFORMATION
  Report Type: 
  Country: None (occurrence: None)
  Receive Date: 20111222
  Receipt Date: 20111222
  Transmission Date: 20120403
  Serious: Yes (Hospitalization)
  Sender: FDA-Public Use
  Company Number: None

PATIENT
  Age: 88 Year
  Sex: Male
  Weight: 86 kg

DRUGS (2)
  1. WARFARIN SODIUM [Suspect]
     Dosage: 1 TAB UD PO
     Route: 048
     Dates: start: 20060524, end: 20111119
  2. WARFARIN SODIUM [Suspect]
     Indication: ATRIAL FIBRILLATION
     Dosage: 1 TAB UD PO
     Route: 048
     Dates: start: 20060524, end: 20111119

REACTIONS (9)
  - DUODENAL OBSTRUCTION [None]
  - PORTAL VEIN THROMBOSIS [None]
  - MESENTERIC VEIN THROMBOSIS [None]
  - INTERNATIONAL NORMALISED RATIO INCREASED [None]
  - HAEMATOMA [None]
  - HAEMORRHAGE [None]
  - INTRA-ABDOMINAL HAEMATOMA [None]
  - SPLENIC VEIN THROMBOSIS [None]
  - INTERNATIONAL NORMALISED RATIO DECREASED [None]
